FAERS Safety Report 9357761 (Version 3)
Quarter: 2013Q4

REPORT INFORMATION
  Report Type: Report from Study
  Country: CN (occurrence: CN)
  Receive Date: 20130620
  Receipt Date: 20131224
  Transmission Date: 20140711
  Serious: Yes (Hospitalization)
  Sender: FDA-Public Use
  Company Number: CN-ROCHE-1236586

PATIENT
  Age: 50 Year
  Sex: Female
  Weight: 59 kg

DRUGS (9)
  1. TRASTUZUMAB [Suspect]
     Indication: HER-2 POSITIVE BREAST CANCER
     Dosage: LOADING DOSE
     Route: 042
     Dates: start: 20130412
  2. TRASTUZUMAB [Suspect]
     Dosage: MAINTENANCE DOSE, LAST DOSE PRIOR TO SAE ON 24/MAY/2013.
     Route: 042
     Dates: end: 20130614
  3. TRASTUZUMAB [Suspect]
     Dosage: MAINTENANCE DOSE, LAST DOSE PRIOR TO SAE ON 24/MAY/2013.
     Route: 042
     Dates: start: 20130702
  4. CARBOPLATIN [Suspect]
     Indication: HER-2 POSITIVE BREAST CANCER
     Route: 065
  5. DOCETAXEL [Suspect]
     Indication: HER-2 POSITIVE BREAST CANCER
     Dosage: LAST DOSE PRIOR TO SAE ON 24/MAY/2013.
     Route: 042
     Dates: start: 20130412, end: 20130614
  6. DOCETAXEL [Suspect]
     Dosage: LAST DOSE PRIOR TO SAE ON 24/MAY/2013.
     Route: 042
     Dates: start: 20130702
  7. PERTUZUMAB [Suspect]
     Indication: HER-2 POSITIVE BREAST CANCER
     Route: 042
     Dates: start: 20130412
  8. PERTUZUMAB [Suspect]
     Dosage: MOST RECENT DOSE PRIOR TO SAE: 24/MAY/2013
     Route: 042
     Dates: end: 20130614
  9. PERTUZUMAB [Suspect]
     Route: 042
     Dates: start: 20130702

REACTIONS (1)
  - Bone marrow failure [Recovered/Resolved]
